FAERS Safety Report 7477562-3 (Version None)
Quarter: 2011Q2

REPORT INFORMATION
  Report Type: 
  Country: None (occurrence: None)
  Receive Date: 20110513
  Receipt Date: 20110429
  Transmission Date: 20111010
  Serious: Yes (Other)
  Sender: FDA-Public Use
  Company Number: US-JNJFOC-20110500996

PATIENT
  Sex: Male

DRUGS (2)
  1. INVEGA [Suspect]
     Indication: BIPOLAR DISORDER
     Route: 048
  2. DEPAKOTE [Suspect]
     Indication: BIPOLAR DISORDER
     Route: 065

REACTIONS (2)
  - WEIGHT DECREASED [None]
  - BLOOD GLUCOSE INCREASED [None]
